FAERS Safety Report 9011011 (Version 1)
Quarter: 2013Q1

REPORT INFORMATION
  Report Type: Spontaneous
  Country: US (occurrence: US)
  Receive Date: 20130109
  Receipt Date: 20130109
  Transmission Date: 20140127
  Serious: Yes (Hospitalization, Other)
  Sender: FDA-Public Use
  Company Number: US-009507513-1301USA001239

PATIENT
  Age: 70 Year
  Sex: Female

DRUGS (6)
  1. SINGULAIR [Suspect]
     Indication: GASTRITIS
  2. COUMADIN [Concomitant]
     Indication: ASTHMA
  3. OS-CAL (CALCIUM CARBONATE) [Concomitant]
     Indication: ATRIAL FIBRILLATION
  4. PAXIL [Suspect]
     Indication: DEPRESSION
  5. MYLANTA [Suspect]
  6. TIKOSYN [Suspect]
     Dosage: 500.00 MCG TOTAL: BID
     Route: 048

REACTIONS (3)
  - Somnolence [Unknown]
  - Pruritus [Unknown]
  - Gastritis [Unknown]
